FAERS Safety Report 9033507 (Version 4)
Quarter: 2013Q2

REPORT INFORMATION
  Report Type: Spontaneous
  Country: BE (occurrence: BE)
  Receive Date: 20130128
  Receipt Date: 20130614
  Transmission Date: 20140414
  Serious: Yes (Hospitalization, Other)
  Sender: FDA-Public Use
  Company Number: BE-MERCK-1209BEL001423

PATIENT
  Age: 60 Year
  Sex: Female
  Weight: 60 kg

DRUGS (7)
  1. PEGINTRON [Suspect]
     Indication: HEPATITIS C
     Dosage: 100 MICROGRAM (0.5 ML) DAILY DOSE, FREQUENCY WEEKLY
     Dates: start: 20120702, end: 20130610
  2. PEGINTRON [Suspect]
     Dosage: 0.45 ML, QW
     Dates: start: 2013
  3. REBETOL [Suspect]
     Indication: HEPATITIS C
     Dosage: TOTAL DAILY DOSE 1000 MG, BID
     Route: 048
     Dates: start: 20120702, end: 2012
  4. REBETOL [Suspect]
     Dosage: TOTAL DAILY DOSE 800 MG (2 CAPS AM AND 2 CAPS PM) , BID
     Route: 048
     Dates: start: 2012, end: 20130423
  5. REBETOL [Suspect]
     Dosage: TOTAL DAILY DOSE 600 MG, BID
     Route: 048
     Dates: start: 20130424, end: 20130610
  6. VICTRELIS [Suspect]
     Indication: HEPATITIS C
     Dosage: TOTAL DAILY DOSE 2400 MG, TID
     Route: 048
     Dates: start: 20120730, end: 20130415
  7. DAFALGAN [Concomitant]
     Dosage: 500 MG, PRN

REACTIONS (16)
  - Urinary tract infection [Recovered/Resolved]
  - Arthritis [Recovered/Resolved]
  - Anaemia [Recovering/Resolving]
  - White blood cell count decreased [Unknown]
  - Crying [Not Recovered/Not Resolved]
  - Pain in extremity [Recovered/Resolved]
  - Alopecia [Unknown]
  - Pruritus [Unknown]
  - Back pain [Unknown]
  - Pyrexia [Unknown]
  - Transfusion [Unknown]
  - Transfusion [Unknown]
  - Fatigue [Not Recovered/Not Resolved]
  - Hot flush [Unknown]
  - Paraesthesia [Unknown]
  - Sciatica [Unknown]
